FAERS Safety Report 16087843 (Version 1)
Quarter: 2019Q1

REPORT INFORMATION
  Report Type: Report from Study
  Country: IT (occurrence: IT)
  Receive Date: 20190319
  Receipt Date: 20190319
  Transmission Date: 20190418
  Serious: Yes (Hospitalization)
  Sender: FDA-Public Use
  Company Number: IT-ACCORD-113478

PATIENT
  Age: 85 Year
  Sex: Male

DRUGS (13)
  1. COUMADIN [Interacting]
     Active Substance: WARFARIN SODIUM
     Indication: ATRIAL FIBRILLATION
     Dosage: STRENGTH 5 MG
     Route: 048
     Dates: start: 20080101, end: 20181010
  2. LUVION [Concomitant]
     Dosage: STRENGTH 50 MG
     Route: 048
  3. SEREVENT DISKUS [Concomitant]
     Active Substance: SALMETEROL XINAFOATE
     Dosage: STRENGTH 50 MCG
     Route: 055
  4. TALOFEN [Concomitant]
     Active Substance: PROMAZINE HYDROCHLORIDE
     Dosage: STRENGTH 4 G / 100 ML
     Route: 048
  5. CARDIOASPIRIN [Interacting]
     Active Substance: ASPIRIN
     Indication: MYOCARDIAL ISCHAEMIA
     Dosage: STRENGTH 100 MG
     Route: 048
     Dates: start: 20080101, end: 20181010
  6. SPIRIVA RESPIMAT [Concomitant]
     Active Substance: TIOTROPIUM BROMIDE
     Dosage: STRENGTH 2.5 MICROGRAMS, SOLUTION FOR INHALATION
     Route: 055
  7. PANTORC [Concomitant]
     Active Substance: PANTOPRAZOLE SODIUM
     Dosage: STRENGTH 20 MG
     Route: 048
  8. SELOKEN [Concomitant]
     Active Substance: METOPROLOL
     Dosage: STRENGTH 100 MG
     Route: 048
  9. LANOXIN [Concomitant]
     Active Substance: DIGOXIN
     Dosage: STRENGTH 0.125 MG
     Route: 048
  10. FUROSEMIDE. [Concomitant]
     Active Substance: FUROSEMIDE
     Route: 048
  11. NITRODERM [Concomitant]
     Active Substance: NITROGLYCERIN
     Dosage: STRENGTH 5 MG / DAY
     Route: 062
  12. CLOPIDOGREL [Suspect]
     Active Substance: CLOPIDOGREL BISULFATE
     Indication: MYOCARDIAL ISCHAEMIA
     Route: 048
     Dates: start: 20180501, end: 20181010
  13. CRESTOR [Concomitant]
     Active Substance: ROSUVASTATIN CALCIUM
     Dosage: STRENGTH 10 MG
     Route: 048

REACTIONS (2)
  - Drug interaction [Unknown]
  - Haematuria [Recovering/Resolving]

NARRATIVE: CASE EVENT DATE: 20180903
